FAERS Safety Report 9955184 (Version 2)
Quarter: 2014Q1

REPORT INFORMATION
  Report Type: Spontaneous
  Country: US (occurrence: US)
  Receive Date: 20140304
  Receipt Date: 20140304
  Transmission Date: 20141002
  Serious: Yes (Disabling)
  Sender: FDA-Public Use
  Company Number: US-GE HEALTHCARE MEDICAL DIAGNOSTICS-OSCN-PR-0805S-0266

PATIENT
  Age: 43 Year
  Sex: Male

DRUGS (11)
  1. OMNISCAN [Suspect]
     Indication: RENAL FAILURE CHRONIC
     Route: 042
     Dates: start: 20041011, end: 20041011
  2. OMNISCAN [Suspect]
     Indication: MASS
     Route: 042
     Dates: start: 20060818, end: 20060818
  3. OMNISCAN [Suspect]
     Indication: CYST
     Route: 042
     Dates: start: 20060822, end: 20060822
  4. OMNISCAN [Suspect]
     Indication: NEOPLASM
     Route: 042
     Dates: start: 20060830, end: 20060830
  5. VALSARTAN [Suspect]
  6. HECTOROL [Concomitant]
     Dates: start: 2005
  7. LISINOPRIL [Concomitant]
     Dates: start: 2005, end: 2006
  8. DECADRON [Concomitant]
  9. FOSRENOL [Concomitant]
  10. EPOGEN [Concomitant]
  11. LANTHANUM [Concomitant]

REACTIONS (1)
  - Nephrogenic systemic fibrosis [Not Recovered/Not Resolved]
